FAERS Safety Report 8651344 (Version 5)
Quarter: 2013Q2

REPORT INFORMATION
  Report Type: Spontaneous
  Country: PR (occurrence: PR)
  Receive Date: 20120705
  Receipt Date: 20130503
  Transmission Date: 20140414
  Serious: Yes (Hospitalization, Other)
  Sender: FDA-Public Use
  Company Number: PR-ABBOTT-12P-131-0943485-00

PATIENT
  Age: 60 Year
  Sex: Female
  Weight: 57.2 kg

DRUGS (13)
  1. HUMIRA [Suspect]
     Indication: RHEUMATOID ARTHRITIS
     Route: 058
     Dates: start: 201104, end: 201205
  2. HUMIRA [Suspect]
     Route: 058
     Dates: end: 201301
  3. HUMIRA [Suspect]
     Route: 058
     Dates: start: 201301
  4. ULTRACET [Concomitant]
     Indication: RHEUMATOID ARTHRITIS
     Route: 048
     Dates: start: 2005, end: 2013
  5. PREDNISONE [Concomitant]
     Indication: RHEUMATOID ARTHRITIS
     Route: 048
     Dates: start: 2002
  6. NEURONTIN [Concomitant]
     Indication: RHEUMATOID ARTHRITIS
     Route: 048
     Dates: start: 2007
  7. IBUPROFEN [Concomitant]
     Indication: RHEUMATOID ARTHRITIS
     Route: 048
     Dates: start: 2005
  8. SYNTHROID [Concomitant]
     Indication: THYROID DISORDER
     Route: 048
     Dates: start: 2002
  9. LISINOPRIL [Concomitant]
     Indication: HYPERTENSION
     Route: 048
     Dates: start: 2005
  10. UNKNOWN PILL FOR IRON [Concomitant]
     Indication: BLOOD IRON DECREASED
     Route: 048
     Dates: start: 20120605, end: 20120620
  11. UNKNOWN MEDICATION [Concomitant]
     Indication: GASTRIC DISORDER
  12. ZANTAC [Concomitant]
     Indication: GASTRIC DISORDER
  13. TRAMADOL [Concomitant]
     Indication: PAIN

REACTIONS (8)
  - Blood iron decreased [Recovered/Resolved]
  - Knee arthroplasty [Recovered/Resolved]
  - Scar [Recovered/Resolved]
  - Eye inflammation [Recovered/Resolved]
  - Eye haemorrhage [Recovered/Resolved]
  - Inappropriate schedule of drug administration [Recovered/Resolved]
  - Nasopharyngitis [Recovered/Resolved]
  - Chest pain [Recovered/Resolved]
